FAERS Safety Report 4383497-5 (Version None)
Quarter: 2004Q2

REPORT INFORMATION
  Report Type: 
  Country: None (occurrence: None)
  Receive Date: 20040616
  Receipt Date: 20040318
  Transmission Date: 20050107
  Serious: Yes (Other)
  Sender: FDA-Public Use
  Company Number: NSADSS2002042444

PATIENT
  Age: 18 Year
  Sex: Female
  Weight: 62.5964 kg

DRUGS (2)
  1. ORTHO TRI-CYCLEN LO [Suspect]
     Indication: MENSTRUATION IRREGULAR
     Dosage: 1 DOSE(S), 1 IN 1 DAY; ORAL
     Route: 048
     Dates: start: 20021029, end: 20021104
  2. CLINDAMYCIN (OVULE) CLINDAMYCIN [Concomitant]

REACTIONS (4)
  - CEREBROVASCULAR ACCIDENT [None]
  - MIGRAINE [None]
  - VAGINITIS BACTERIAL [None]
  - VOMITING [None]
